FAERS Safety Report 21872130 (Version 1)
Quarter: 2023Q1

REPORT INFORMATION
  Report Type: Spontaneous
  Country: US (occurrence: None)
  Receive Date: 20230113
  Receipt Date: 20230113
  Transmission Date: 20230418
  Serious: Yes (Hospitalization)
  Sender: FDA-Public Use
  Company Number: None

PATIENT
  Age: 66 Year
  Sex: Female

DRUGS (1)
  1. EMPAGLIFLOZIN [Suspect]
     Active Substance: EMPAGLIFLOZIN
     Indication: Diabetes mellitus
     Dates: start: 20221118, end: 20221225

REACTIONS (4)
  - Diabetic ketoacidosis [None]
  - Respiratory failure [None]
  - Substance use [None]
  - Drug screen positive [None]

NARRATIVE: CASE EVENT DATE: 20221225
